FAERS Safety Report 4795014-6 (Version None)
Quarter: 2005Q4

REPORT INFORMATION
  Report Type: 
  Country: None (occurrence: None)
  Receive Date: 20051006
  Receipt Date: 20050921
  Transmission Date: 20060501
  Serious: Yes (Hospitalization)
  Sender: FDA-Public Use
  Company Number: 2005-01989

PATIENT
  Age: 53 Year
  Sex: Female
  Weight: 55 kg

DRUGS (12)
  1. VELCADE [Suspect]
     Indication: LYMPHOMA
     Dosage: 1.30 MG/M2, 2/WEEK, INTRAVENOUS
     Route: 042
     Dates: start: 20050729, end: 20050916
  2. RITUXIMAB (RITUXIMAB) [Suspect]
     Indication: LYMPHOMA
     Dosage: 375.00 MG/M2 1/WEEK, INTRAVENOUS
     Route: 042
     Dates: start: 20050729, end: 20050819
  3. VANCOMYCIN [Concomitant]
  4. CEFEPIME (CEFEPIME) [Concomitant]
  5. VALACYCLOVIR HCL [Concomitant]
  6. PAROXETINE HCL [Concomitant]
  7. ZOFRAN [Concomitant]
  8. ACETAMINOPHEN [Concomitant]
  9. PROPOXYPHENE HCL [Concomitant]
  10. ZOLPIDEM TARTRATE [Concomitant]
  11. TOBRADEX (TOBRAMYCIN) [Concomitant]
  12. GATIFLOXACIN [Concomitant]

REACTIONS (3)
  - CONJUNCTIVITIS [None]
  - HORDEOLUM [None]
  - NEUTROPHIL COUNT INCREASED [None]
